FAERS Safety Report 9845988 (Version 1)
Quarter: 2014Q1

REPORT INFORMATION
  Report Type: Spontaneous
  Country: US (occurrence: None)
  Receive Date: 20140123
  Receipt Date: 20140123
  Transmission Date: 20141002
  Serious: No
  Sender: FDA-Public Use
  Company Number: None

PATIENT
  Age: 56 Year
  Sex: Male
  Weight: 92.99 kg

DRUGS (1)
  1. AXIRON [Suspect]
     Indication: HORMONE REPLACEMENT THERAPY
     Dosage: 60 MG ONCE DAILY APPLIED TO A SURFACE, USUALLY THE SKIN
     Route: 061
     Dates: start: 20131103, end: 20140105

REACTIONS (4)
  - Prostatomegaly [None]
  - Tendonitis [None]
  - Influenza [None]
  - Asthenia [None]
